FAERS Safety Report 7274847-0 (Version None)
Quarter: 2011Q1

REPORT INFORMATION
  Report Type: 
  Country: None (occurrence: None)
  Receive Date: 20110204
  Receipt Date: 20110127
  Transmission Date: 20110831
  Serious: Yes (Hospitalization, Other)
  Sender: FDA-Public Use
  Company Number: NL-JNJFOC-JRFBEL1999001974

PATIENT
  Sex: Female

DRUGS (1)
  1. TRISPORAL [Suspect]
     Indication: ONYCHOMYCOSIS
     Dosage: 1ST, 3RD AND 5TH WEEK
     Route: 048
     Dates: start: 19990330

REACTIONS (3)
  - GASTROENTERITIS [None]
  - INCORRECT DOSE ADMINISTERED [None]
  - PANCREATITIS ACUTE [None]
